FAERS Safety Report 21052402 (Version 2)
Quarter: 2022Q4

REPORT INFORMATION
  Report Type: Spontaneous
  Country: ES (occurrence: ES)
  Receive Date: 20220707
  Receipt Date: 20221115
  Transmission Date: 20230112
  Serious: Yes (Life-Threatening, Hospitalization, Other)
  Sender: FDA-Public Use
  Company Number: ES-GLAXOSMITHKLINE-ESCH2022GSK018831

PATIENT
  Age: 19 Year
  Sex: Female

DRUGS (8)
  1. ACETAMINOPHEN [Suspect]
     Active Substance: ACETAMINOPHEN
     Indication: Product used for unknown indication
     Dosage: 18 GRAM, 1 TOTAL (18 G, SINGLE)
     Route: 048
     Dates: start: 20220226, end: 20220226
  2. LORAZEPAM [Suspect]
     Active Substance: LORAZEPAM
     Indication: Anxiety
     Dosage: 20 MILLIGRAM, 1 TOTAL, (20 MG SINGLE)
     Route: 048
     Dates: start: 20220226, end: 20220226
  3. LORAZEPAM [Suspect]
     Active Substance: LORAZEPAM
     Dosage: 1 MILLIGRAM, PRN (1 MG, AS NEEDED)
     Route: 048
     Dates: start: 20220301, end: 20220301
  4. LORAZEPAM [Concomitant]
     Active Substance: LORAZEPAM
     Indication: Anxiety
     Dosage: 1 MILLIGRAM, PRN
     Route: 048
     Dates: start: 20220301
  5. ACETYLCYSTEINE [Concomitant]
     Active Substance: ACETYLCYSTEINE
     Indication: Product used for unknown indication
     Dosage: 5 GRAM, 1 TOTAL (5 G, SINGLE)
     Route: 042
     Dates: start: 20220226, end: 20220226
  6. PAROXETINE [Concomitant]
     Active Substance: PAROXETINE
     Indication: Anxiety
     Dosage: 10 MILLIGRAM, QD (10 MG, 1X/DAY)
     Route: 048
     Dates: start: 20220217, end: 20220225
  7. PAROXETINE [Concomitant]
     Active Substance: PAROXETINE
     Dosage: 20 MILLIGRAM, QD (20 MG, 1D)
     Route: 048
     Dates: start: 20220301, end: 202203
  8. RSV VACCINE [Concomitant]
     Dosage: 1 TOTAL, DOSE 1, SINGLE
     Route: 065

REACTIONS (8)
  - Suicide attempt [Recovered/Resolved]
  - Intentional overdose [Recovered/Resolved]
  - Suicidal ideation [Unknown]
  - Fear [Unknown]
  - Flat affect [Unknown]
  - Insomnia [Unknown]
  - Toxicity to various agents [Unknown]
  - Nervousness [Unknown]

NARRATIVE: CASE EVENT DATE: 20220226
